FAERS Safety Report 4917166-7 (Version None)
Quarter: 2006Q1

REPORT INFORMATION
  Report Type: 
  Country: None (occurrence: None)
  Receive Date: 20060221
  Receipt Date: 20060207
  Transmission Date: 20060701
  Serious: Yes (Hospitalization)
  Sender: FDA-Public Use
  Company Number: FR-AVENTIS-200610497FR

PATIENT
  Age: 82 Year
  Sex: Female
  Weight: 52 kg

DRUGS (14)
  1. LASILIX [Suspect]
     Route: 048
     Dates: end: 20060102
  2. TRIATEC [Suspect]
     Route: 048
  3. SERESTA [Suspect]
     Route: 048
     Dates: end: 20051213
  4. ZYLORIC [Suspect]
     Route: 048
     Dates: start: 20050101, end: 20051213
  5. LEVOTHYROX [Concomitant]
     Route: 048
  6. DIAFUSOR [Concomitant]
     Route: 023
     Dates: start: 20050101
  7. KARDEGIC [Concomitant]
     Route: 048
     Dates: start: 20050101
  8. DIGOXIN [Concomitant]
     Dates: start: 20050101
  9. COUMADIN [Concomitant]
     Route: 048
     Dates: start: 20060105
  10. DIAMOX [Concomitant]
     Dates: start: 20051226
  11. CARDENSIEL [Concomitant]
     Route: 048
     Dates: start: 20060101
  12. CLARITIN [Concomitant]
     Dates: start: 20051218
  13. ATARAX [Concomitant]
     Dates: start: 20051214, end: 20051218
  14. CETIRIZINE HCL [Concomitant]
     Route: 048
     Dates: start: 20051218, end: 20051227

REACTIONS (8)
  - AORTIC VALVE STENOSIS [None]
  - CARDIAC FAILURE [None]
  - EOSINOPHILIA [None]
  - GENERAL PHYSICAL HEALTH DETERIORATION [None]
  - INTERSTITIAL LUNG DISEASE [None]
  - PLEURAL EFFUSION [None]
  - PRURIGO [None]
  - PRURITUS [None]
